FAERS Safety Report 7360427-5 (Version None)
Quarter: 2011Q1

REPORT INFORMATION
  Report Type: 
  Country: None (occurrence: None)
  Receive Date: 20110310
  Receipt Date: 20110301
  Transmission Date: 20110831
  Serious: Yes (Hospitalization)
  Sender: FDA-Public Use
  Company Number: 026923

PATIENT
  Sex: Male
  Weight: 108 kg

DRUGS (12)
  1. METFORMIN [Concomitant]
  2. MANINIL [Concomitant]
  3. TAMSULOSIN [Concomitant]
  4. ALLOPURINOL [Concomitant]
  5. DILTAHEXAL [Concomitant]
  6. PREGABALIN [Concomitant]
  7. PROTHYRID [Concomitant]
  8. NEUPRO [Suspect]
     Indication: RESTLESS LEGS SYNDROME
     Dosage: 2MG 1X24,4MG 1X/24 HOURS,5MG 1X24, 6MG 1X24/HOURS, TRANSDERMAL
     Route: 062
     Dates: start: 20100718, end: 20100720
  9. NEUPRO [Suspect]
     Indication: RESTLESS LEGS SYNDROME
     Dosage: 2MG 1X24,4MG 1X/24 HOURS,5MG 1X24, 6MG 1X24/HOURS, TRANSDERMAL
     Route: 062
     Dates: start: 20100721, end: 20100723
  10. NEUPRO [Suspect]
     Indication: RESTLESS LEGS SYNDROME
     Dosage: 2MG 1X24,4MG 1X/24 HOURS,5MG 1X24, 6MG 1X24/HOURS, TRANSDERMAL
     Route: 062
     Dates: start: 20100714, end: 20100717
  11. NEUPRO [Suspect]
     Indication: RESTLESS LEGS SYNDROME
     Dosage: 2MG 1X24,4MG 1X/24 HOURS,5MG 1X24, 6MG 1X24/HOURS, TRANSDERMAL
     Route: 062
     Dates: start: 20100724
  12. B-KOMPLEX FORTE-HEVERT [Concomitant]

REACTIONS (4)
  - CEREBRAL ISCHAEMIA [None]
  - HEMIPARESIS [None]
  - POLYNEUROPATHY [None]
  - DYSARTHRIA [None]
